FAERS Safety Report 4366988-2 (Version None)
Quarter: 2004Q2

REPORT INFORMATION
  Report Type: 
  Country: None (occurrence: None)
  Receive Date: 20040527
  Receipt Date: 20040527
  Transmission Date: 20050107
  Serious: Yes (Hospitalization)
  Sender: FDA-Public Use
  Company Number: None

PATIENT
  Age: 27 Year
  Sex: Female
  Weight: 45.3597 kg

DRUGS (1)
  1. ELMIRON [Suspect]
     Indication: CYSTITIS INTERSTITIAL
     Dosage: 200 MG TWICE DAILY ORAL
     Route: 048
     Dates: start: 20040331, end: 20040512

REACTIONS (4)
  - ABDOMINAL PAIN [None]
  - DEHYDRATION [None]
  - HEART RATE IRREGULAR [None]
  - LOSS OF CONSCIOUSNESS [None]
